FAERS Safety Report 12563106 (Version 1)
Quarter: 2016Q3

REPORT INFORMATION
  Report Type: Spontaneous
  Country: GB (occurrence: GB)
  Receive Date: 20160715
  Receipt Date: 20160715
  Transmission Date: 20161109
  Serious: Yes (Other)
  Sender: FDA-Public Use
  Company Number: GB-MYLANLABS-2016M1028508

PATIENT

DRUGS (7)
  1. FUSIDIC ACID [Concomitant]
     Active Substance: FUSIDIC ACID
     Dosage: APPLY SMALL VOLUME TO AFFECTED SITES TWICE A DAY
     Dates: start: 20160505, end: 20160506
  2. ATORVASTATIN [Concomitant]
     Active Substance: ATORVASTATIN
     Indication: BLOOD CHOLESTEROL INCREASED
     Dosage: AT NIGHT.
     Dates: start: 20160628
  3. TAMSULOSIN HYDROCHLORIDE. [Concomitant]
     Active Substance: TAMSULOSIN HYDROCHLORIDE
     Dosage: 1 DF, QD
     Dates: start: 20150511
  4. SIMVASTATIN. [Suspect]
     Active Substance: SIMVASTATIN
     Dosage: 80 MG, UNK
     Dates: start: 20141201
  5. NASEPTIN [Concomitant]
     Active Substance: CHLORHEXIDINE HYDROCHLORIDE\NEOMYCIN SULFATE
     Dosage: 2 DF, QID (APPLY INSIDE BOTH NOSTRILS)
     Dates: start: 20160628
  6. DERMOL                             /01330701/ [Concomitant]
     Dosage: ON AFFECTED AREAS
     Dates: start: 20160602
  7. DORZOLAMIDE HYDROCHLORIDE. [Concomitant]
     Active Substance: DORZOLAMIDE HYDROCHLORIDE
     Dosage: 1 GTT, BID
     Dates: start: 20141201

REACTIONS (3)
  - Abnormal dreams [Unknown]
  - Myalgia [Unknown]
  - Pain in extremity [Unknown]

NARRATIVE: CASE EVENT DATE: 20160628
